FAERS Safety Report 4680679-X (Version None)
Quarter: 2005Q2

REPORT INFORMATION
  Report Type: 
  Country: None (occurrence: None)
  Receive Date: 20050603
  Receipt Date: 20050506
  Transmission Date: 20051028
  Serious: Yes (Other)
  Sender: FDA-Public Use
  Company Number: 2005GB00899

PATIENT
  Age: 41 Year
  Sex: Male
  Weight: 83 kg

DRUGS (3)
  1. CRESTOR [Suspect]
     Indication: MIXED HYPERLIPIDAEMIA
     Route: 048
     Dates: start: 20041124, end: 20050119
  2. CRESTOR [Suspect]
     Route: 048
     Dates: start: 20050119
  3. ASPIRIN [Concomitant]
     Indication: PROPHYLAXIS
     Route: 048
     Dates: start: 20041124

REACTIONS (2)
  - BLOOD GLUCOSE INCREASED [None]
  - GLYCOSYLATED HAEMOGLOBIN INCREASED [None]
